FAERS Safety Report 13738759 (Version 1)
Quarter: 2017Q3

REPORT INFORMATION
  Report Type: Spontaneous
  Country: US (occurrence: US)
  Receive Date: 20170710
  Receipt Date: 20170710
  Transmission Date: 20171127
  Serious: Yes (Other)
  Sender: FDA-Public Use
  Company Number: US-SAOL THERAPEUTICS-2017SAO00007

PATIENT
  Age: 15 Year
  Sex: Male
  Weight: 40 kg

DRUGS (26)
  1. OXCARBAZEPINE. [Concomitant]
     Active Substance: OXCARBAZEPINE
     Dosage: 13 ML, 2X/DAY
  2. PREDNISOLONE. [Concomitant]
     Active Substance: PREDNISOLONE
  3. BOTULINUM TOXIN INJECTIONS [Concomitant]
  4. GLYCOPYRROLATE. [Concomitant]
     Active Substance: GLYCOPYRROLATE
     Dosage: 1 MG, 3X/DAY
  5. SENNA [Concomitant]
     Active Substance: SENNA LEAF\SENNOSIDES\SENNOSIDES A AND B
     Dosage: 5 ML, AS NEEDED
  6. TRANSDERM SCOP [Concomitant]
     Active Substance: SCOPOLAMINE
     Dosage: 1 PATCH, EVERY 72 HOURS
     Route: 062
  7. ERYTHROMYCIN-BENZOYL PEROXIDE [Concomitant]
     Active Substance: BENZOYL PEROXIDE\ERYTHROMYCIN
     Dosage: 1 DOSAGE UNITS, 2X/DAY
     Route: 061
  8. LIORESAL [Suspect]
     Active Substance: BACLOFEN
     Dosage: 1582.4 ?G, \DAY
     Route: 037
     Dates: start: 20170113
  9. VALACYCLOVIR [Concomitant]
     Active Substance: VALACYCLOVIR HYDROCHLORIDE
     Dosage: UNK, AS NEEDED
  10. LIORESAL [Suspect]
     Active Substance: BACLOFEN
     Indication: CEREBRAL PALSY
     Dosage: 1425 ?G, \DAY
     Dates: start: 20161115, end: 20161227
  11. MAGNESIUM CITRATE. [Concomitant]
     Active Substance: MAGNESIUM CITRATE
     Dosage: 300 ML, 1X/DAY
     Route: 048
  12. NEXIUM [Concomitant]
     Active Substance: ESOMEPRAZOLE MAGNESIUM
     Dosage: 1 DOSAGE UNITS, 2X/DAY
  13. LIORESAL [Suspect]
     Active Substance: BACLOFEN
     Dosage: 1100 ?G, \DAY
     Dates: start: 20161230
  14. LIORESAL [Suspect]
     Active Substance: BACLOFEN
     Dosage: UNK
  15. DYMISTA [Concomitant]
     Active Substance: AZELASTINE HYDROCHLORIDE\FLUTICASONE PROPIONATE
     Dosage: 1 DOSAGE UNITS, 1X/DAY
     Route: 045
  16. PREVACID SOLUTAB DELAYED RELEASE [Concomitant]
     Dosage: 1 TABLETS, 1X/DAY
  17. SODIUM CHLORIDE. [Concomitant]
     Active Substance: SODIUM CHLORIDE
     Dosage: 1 DOSAGE UNITS, 2X/DAY
  18. ZOVIRAX [Concomitant]
     Active Substance: ACYCLOVIR
     Route: 061
  19. LIORESAL [Suspect]
     Active Substance: BACLOFEN
     Dosage: 900 ?G, \DAY
     Route: 037
     Dates: start: 20161227, end: 20161230
  20. MELATONIN [Concomitant]
     Active Substance: MELATONIN
     Dosage: 5 MG, UNK
     Dates: start: 20160614
  21. MIRALAX [Concomitant]
     Active Substance: POLYETHYLENE GLYCOL 3350
     Dosage: 12 DOSAGE UNITS, 1X/DAY
     Route: 048
  22. LIORESAL [Suspect]
     Active Substance: BACLOFEN
     Indication: MUSCLE SPASTICITY
     Dosage: 1376.7 ?G, \DAY
     Dates: start: 20160921, end: 20161115
  23. LEVETIRACETAM. [Concomitant]
     Active Substance: LEVETIRACETAM
     Dosage: 1500 MG, 2X/DAY
  24. LMX [Concomitant]
     Active Substance: LIDOCAINE
     Dosage: UNK, AS NEEDED
  25. MELATONIN [Concomitant]
     Active Substance: MELATONIN
     Dosage: 10 MG, 1X/DAY
  26. TRAZODONE [Concomitant]
     Active Substance: TRAZODONE HYDROCHLORIDE
     Dosage: 1.5 TABLETS, 1X/DAY

REACTIONS (9)
  - Muscle spasticity [Recovered/Resolved]
  - Erythema [Recovered/Resolved]
  - Complication associated with device [Unknown]
  - Irritability [Recovered/Resolved]
  - Device infusion issue [Unknown]
  - Therapy non-responder [Recovered/Resolved]
  - Seizure [Unknown]
  - Drug withdrawal syndrome [Recovered/Resolved]
  - Rash macular [Recovered/Resolved]

NARRATIVE: CASE EVENT DATE: 201611
